FAERS Safety Report 8385724-6 (Version None)
Quarter: 2012Q2

REPORT INFORMATION
  Report Type: 
  Country: None (occurrence: None)
  Receive Date: 20120523
  Receipt Date: 20120523
  Transmission Date: 20120825
  Serious: Yes (Other)
  Sender: FDA-Public Use
  Company Number: None

PATIENT
  Age: 74 Year
  Sex: Female
  Weight: 70.489 kg

DRUGS (3)
  1. RITUXAN [Suspect]
     Indication: LYMPHOMA
     Dosage: 700MG X1 IV
     Route: 042
  2. TYLENOL [Concomitant]
  3. BENADRYL [Concomitant]

REACTIONS (5)
  - BACK PAIN [None]
  - HYPERHIDROSIS [None]
  - HYPOTENSION [None]
  - INCONTINENCE [None]
  - VOMITING [None]
